FAERS Safety Report 8936394 (Version 3)
Quarter: 2013Q1

REPORT INFORMATION
  Report Type: Spontaneous
  Country: US (occurrence: US)
  Receive Date: 20121130
  Receipt Date: 20130304
  Transmission Date: 20140127
  Serious: Yes (Hospitalization, Other)
  Sender: FDA-Public Use
  Company Number: US-PFIZER INC-2012299058

PATIENT
  Sex: 0

DRUGS (1)
  1. GEODON [Suspect]
     Indication: BIPOLAR DISORDER
     Dosage: UNK
     Dates: start: 2004

REACTIONS (6)
  - Mental impairment [Unknown]
  - Tremor [Unknown]
  - Pain [Unknown]
  - Dystonia [Unknown]
  - Muscle twitching [Unknown]
  - Malaise [Unknown]
